FAERS Safety Report 20802760 (Version 1)
Quarter: 2022Q2

REPORT INFORMATION
  Report Type: Spontaneous
  Country: US (occurrence: US)
  Receive Date: 20220509
  Receipt Date: 20220509
  Transmission Date: 20220720
  Serious: No
  Sender: FDA-Public Use
  Company Number: US-HORIZON THERAPEUTICS-HZN-2021-002787

PATIENT
  Sex: Male

DRUGS (3)
  1. DUEXIS [Suspect]
     Active Substance: FAMOTIDINE\IBUPROFEN
     Indication: Back pain
     Dosage: IBUPROFEN 800MG, FAMOTIDINE 26.6MG, BID
     Route: 048
     Dates: start: 20210520
  2. DUEXIS [Suspect]
     Active Substance: FAMOTIDINE\IBUPROFEN
     Indication: Osteoarthritis
  3. DUEXIS [Suspect]
     Active Substance: FAMOTIDINE\IBUPROFEN
     Indication: Gastritis

REACTIONS (2)
  - Product packaging quantity issue [Unknown]
  - Off label use [Unknown]
